FAERS Safety Report 6609958-3 (Version None)
Quarter: 2010Q1

REPORT INFORMATION
  Report Type: 
  Country: None (occurrence: None)
  Receive Date: 20100302
  Receipt Date: 20100223
  Transmission Date: 20100710
  Serious: Yes (Death, Hospitalization)
  Sender: FDA-Public Use
  Company Number: JP-ROCHE-588802

PATIENT
  Sex: Male
  Weight: 62 kg

DRUGS (34)
  1. TOCILIZUMAB [Suspect]
     Indication: CASTLEMAN'S DISEASE
     Route: 041
     Dates: start: 20060117, end: 20060131
  2. TOCILIZUMAB [Suspect]
     Dosage: DOSE INCREASED
     Route: 041
     Dates: start: 20060214, end: 20060509
  3. TOCILIZUMAB [Suspect]
     Dosage: DOSE INCREASED
     Route: 041
     Dates: start: 20060523, end: 20060926
  4. TOCILIZUMAB [Suspect]
     Dosage: DOSE INCREASED
     Route: 041
     Dates: start: 20061010, end: 20061010
  5. TOCILIZUMAB [Suspect]
     Dosage: DOSE INCREASED
     Route: 041
     Dates: start: 20061024, end: 20070227
  6. TOCILIZUMAB [Suspect]
     Dosage: DOSE INCREASED
     Route: 041
     Dates: start: 20070313, end: 20070410
  7. TOCILIZUMAB [Suspect]
     Dosage: DOSE INCREASED
     Route: 041
     Dates: start: 20070424, end: 20071120
  8. TOCILIZUMAB [Suspect]
     Dosage: DOSE DECREASED
     Route: 041
     Dates: start: 20071204, end: 20080115
  9. TOCILIZUMAB [Suspect]
     Dosage: DOSE DECREASED
     Route: 041
     Dates: start: 20080129, end: 20080212
  10. TOCILIZUMAB [Suspect]
     Dosage: DOSE DECREASED
     Route: 041
     Dates: start: 20080226, end: 20080506
  11. TOCILIZUMAB [Suspect]
     Dosage: DOSE DECREASED
     Route: 041
     Dates: start: 20080520, end: 20081118
  12. TOCILIZUMAB [Suspect]
     Route: 041
     Dates: start: 20090217, end: 20090217
  13. PREDNISOLONE [Suspect]
     Indication: CASTLEMAN'S DISEASE
     Route: 048
     Dates: end: 20061010
  14. PREDNISOLONE [Suspect]
     Dosage: DOSE DECREASED
     Route: 048
     Dates: start: 20061011, end: 20061120
  15. PREDNISOLONE [Suspect]
     Dosage: DOSE DECREASED
     Route: 048
     Dates: start: 20061121
  16. PREDNISOLONE [Suspect]
     Route: 048
     Dates: end: 20090222
  17. ONON [Concomitant]
     Route: 048
     Dates: end: 20090222
  18. OMEPRAL [Concomitant]
     Route: 048
     Dates: end: 20090222
  19. THYRADIN S [Concomitant]
     Route: 048
     Dates: end: 20090222
  20. LASIX [Concomitant]
     Dosage: FORM: ORAL FORMULATION (NOT OTHERWISE SPECIFIED)
     Route: 048
     Dates: end: 20090222
  21. RENAGEL [Concomitant]
     Dosage: DRUG REPORTED AS RENAGEL TABLETS 250 MG
     Route: 048
     Dates: end: 20090222
  22. MEQUITAZINE [Concomitant]
     Dosage: DRUG NAME: MEQUITAMIN
     Route: 048
  23. CALCITRIOL [Concomitant]
     Dosage: DRUG NAME: POSLOTLE S, NOTE: DIALYSIS DAY
     Route: 048
     Dates: start: 20060107, end: 20070628
  24. CALCITRIOL [Concomitant]
     Route: 048
     Dates: start: 20070630
  25. CALCITRIOL [Concomitant]
     Route: 048
     Dates: end: 20090222
  26. NOVOLIN R [Concomitant]
     Dosage: MORNING 4 UT, DAYTIME 10 UT, NIGHT 4UT, DOSAGE: 18 UT
     Route: 058
     Dates: start: 20070101, end: 20090222
  27. FESIN [Concomitant]
     Dosage: ROUTE: INTRAVENOUS (NOT OTHERWISE SPECIFIED)
     Route: 042
     Dates: start: 20070417, end: 20070512
  28. FESIN [Concomitant]
     Route: 042
     Dates: start: 20070705
  29. FESIN [Concomitant]
     Route: 042
     Dates: start: 20070221, end: 20080315
  30. CLOBETASONE BUTYRATE [Concomitant]
     Dosage: DRUG NAME:KINDAVATE
     Route: 061
     Dates: start: 20070621, end: 20070628
  31. CALTAN [Concomitant]
     Route: 048
     Dates: start: 20070623, end: 20090222
  32. POLARAMINE [Concomitant]
     Dosage: FORM: ORAL FORMULATION (NOT OTHERWISE SPECIFIED)
     Route: 048
     Dates: start: 20070809, end: 20090222
  33. GARASONE [Concomitant]
     Route: 061
     Dates: start: 20070927, end: 20090222
  34. MICARDIS [Concomitant]
     Route: 048
     Dates: start: 20071219, end: 20090222

REACTIONS (8)
  - ARTHRITIS INFECTIVE [None]
  - BURSITIS [None]
  - ENTEROCOLITIS [None]
  - ERYTHEMA [None]
  - OEDEMA PERIPHERAL [None]
  - SEPSIS [None]
  - UPPER RESPIRATORY TRACT INFLAMMATION [None]
  - URINARY TRACT INFECTION [None]
